FAERS Safety Report 14425221 (Version 3)
Quarter: 2018Q3

REPORT INFORMATION
  Report Type: Spontaneous
  Country: US (occurrence: US)
  Receive Date: 20180123
  Receipt Date: 20180905
  Transmission Date: 20181010
  Serious: Yes (Hospitalization)
  Sender: FDA-Public Use
  Company Number: US-DSJP-DSU-2017-139843

PATIENT

DRUGS (4)
  1. BENICAR [Suspect]
     Active Substance: OLMESARTAN MEDOXOMIL
     Dosage: 20 MG HALF TAB, QD
     Route: 048
     Dates: start: 20100101
  2. BENICAR [Suspect]
     Active Substance: OLMESARTAN MEDOXOMIL
     Indication: BLOOD PRESSURE MANAGEMENT
     Dosage: 5 MG, QD
     Route: 048
     Dates: start: 20100101, end: 20171003
  3. BENICAR [Suspect]
     Active Substance: OLMESARTAN MEDOXOMIL
     Dosage: 5 MG 2 TABLETS, BID
  4. BENICAR [Suspect]
     Active Substance: OLMESARTAN MEDOXOMIL
     Dosage: 20 MG, UNK
     Route: 048
     Dates: start: 20100101, end: 20171003

REACTIONS (7)
  - Large intestine polyp [Not Recovered/Not Resolved]
  - Sprue-like enteropathy [Recovering/Resolving]
  - Coeliac disease [Not Recovered/Not Resolved]
  - Drug administration error [Unknown]
  - Diverticulum intestinal [Unknown]
  - Haemorrhoids [Recovering/Resolving]
  - Gastrooesophageal reflux disease [Unknown]

NARRATIVE: CASE EVENT DATE: 20100101
